FAERS Safety Report 16864696 (Version 1)
Quarter: 2019Q3

REPORT INFORMATION
  Report Type: Spontaneous
  Country: GB (occurrence: GB)
  Receive Date: 20190929
  Receipt Date: 20190929
  Transmission Date: 20191005
  Serious: Yes (Hospitalization)
  Sender: FDA-Public Use
  Company Number: PHHY2019GB223141

PATIENT
  Age: 73 Year
  Sex: Female

DRUGS (1)
  1. TEGRETOL [Suspect]
     Active Substance: CARBAMAZEPINE
     Indication: EPILEPSY
     Dosage: 600 MG, QD (200 MG, IN THE MORNING AND 400 MG IN THE EVENING)
     Route: 048

REACTIONS (2)
  - Sedation [Unknown]
  - Wrong technique in product usage process [Unknown]
